FAERS Safety Report 22224609 (Version 1)
Quarter: 2023Q2

REPORT INFORMATION
  Report Type: Report from Study
  Country: CN (occurrence: CN)
  Receive Date: 20230418
  Receipt Date: 20230418
  Transmission Date: 20230722
  Serious: Yes (Hospitalization)
  Sender: FDA-Public Use
  Company Number: CN-Merck Healthcare KGaA-9395301

PATIENT
  Age: 61 Year
  Sex: Female

DRUGS (7)
  1. CETUXIMAB [Suspect]
     Active Substance: CETUXIMAB
     Indication: Rectal cancer metastatic
     Dosage: UNK UNK, UNKNOWN
     Route: 065
     Dates: start: 20200416
  2. CETUXIMAB [Suspect]
     Active Substance: CETUXIMAB
     Dosage: UNK UNK, UNKNOWN
     Route: 065
     Dates: start: 20200530
  3. CETUXIMAB [Suspect]
     Active Substance: CETUXIMAB
     Dosage: UNK UNK, UNKNOWN
     Route: 065
     Dates: start: 20201017, end: 20201017
  4. CETUXIMAB [Suspect]
     Active Substance: CETUXIMAB
     Dosage: UNK UNK, UNKNOWN
     Route: 065
     Dates: start: 20201121
  5. TEGAFUR [Concomitant]
     Active Substance: TEGAFUR
     Indication: Rectal cancer metastatic
     Dosage: UNK
     Route: 048
     Dates: start: 20200416
  6. GIMERACIL [Concomitant]
     Active Substance: GIMERACIL
     Indication: Rectal cancer metastatic
     Dosage: UNK UNK, UNKNOWN
     Route: 048
     Dates: start: 20200416
  7. OTERACIL POTASSIUM [Concomitant]
     Active Substance: OTERACIL POTASSIUM
     Indication: Rectal cancer metastatic
     Dosage: UNK UNK, UNKNOWN
     Route: 048
     Dates: start: 20200416

REACTIONS (3)
  - Syncope [Unknown]
  - Sepsis [Unknown]
  - Electrolyte imbalance [Unknown]

NARRATIVE: CASE EVENT DATE: 20221001
